FAERS Safety Report 5839016-7 (Version None)
Quarter: 2008Q3

REPORT INFORMATION
  Report Type: 
  Country: None (occurrence: None)
  Receive Date: 20080808
  Receipt Date: 20080721
  Transmission Date: 20090109
  Serious: No
  Sender: FDA-Public Use
  Company Number: US-BOEHRINGER INGELHEIM GMBH, GERMANY-2008-BP-11470BP

PATIENT
  Sex: Female

DRUGS (2)
  1. SPIRIVA [Suspect]
     Indication: BRONCHITIS CHRONIC
     Route: 055
     Dates: start: 20070101
  2. VITAMIN E [Concomitant]
     Indication: MACULAR DEGENERATION

REACTIONS (3)
  - ARTIFICIAL CROWN PROCEDURE [None]
  - DRY MOUTH [None]
  - TOOTH DISORDER [None]
